FAERS Safety Report 4747111-9 (Version None)
Quarter: 2005Q3

REPORT INFORMATION
  Report Type: 
  Country: None (occurrence: None)
  Receive Date: 20050815
  Receipt Date: 20050803
  Transmission Date: 20060218
  Serious: Yes (Disabling, Other)
  Sender: FDA-Public Use
  Company Number: 200511565BWH

PATIENT
  Age: 44 Year
  Sex: Male
  Weight: 99.7913 kg

DRUGS (7)
  1. LEVITRA [Suspect]
     Indication: ERECTILE DYSFUNCTION
     Dosage: 20 MG, ONCE, ORAL; 20 MG, ONCE, ORAL
     Route: 048
     Dates: start: 20050201
  2. LEVITRA [Suspect]
     Indication: ERECTILE DYSFUNCTION
     Dosage: 20 MG, ONCE, ORAL; 20 MG, ONCE, ORAL
     Route: 048
     Dates: start: 20050720
  3. FLEXERIL [Concomitant]
  4. TYLENOL [Concomitant]
  5. ACETAMINOPHEN AND HYDROCODONE BITARTRATE [Concomitant]
  6. VALIUM [Concomitant]
  7. NORCOS [Concomitant]

REACTIONS (2)
  - HAEMATOCRIT DECREASED [None]
  - OPTIC ISCHAEMIC NEUROPATHY [None]
